FAERS Safety Report 13886638 (Version 4)
Quarter: 2020Q3

REPORT INFORMATION
  Report Type: Report from Study
  Country: KR (occurrence: KR)
  Receive Date: 20170821
  Receipt Date: 20171228
  Transmission Date: 20201104
  Serious: Yes (Death, Hospitalization, Other)
  Sender: FDA-Public Use
  Company Number: KR-JNJFOC-20170725737

PATIENT
  Age: 51 Year
  Sex: Female
  Weight: 54 kg

DRUGS (19)
  1. BENZYDAMINE [Concomitant]
     Active Substance: BENZYDAMINE
     Indication: STOMATITIS
     Dates: start: 20170612
  2. MAGNESIUM SULFATE. [Concomitant]
     Active Substance: MAGNESIUM SULFATE
     Indication: CONSTIPATION
     Route: 048
     Dates: start: 20170616
  3. DESONIDE. [Concomitant]
     Active Substance: DESONIDE
     Indication: DRY SKIN
     Route: 061
     Dates: start: 20170620, end: 20170710
  4. NYSTATIN. [Concomitant]
     Active Substance: NYSTATIN
     Indication: STOMATITIS
     Dates: start: 20170610
  5. OXYCODONE [Concomitant]
     Active Substance: OXYCODONE
     Indication: BACK PAIN
     Route: 048
     Dates: start: 20170525
  6. DESONIDE. [Concomitant]
     Active Substance: DESONIDE
     Indication: PRURITUS
     Route: 061
     Dates: start: 20170620, end: 20170710
  7. FILGRASTIM [Concomitant]
     Active Substance: FILGRASTIM
     Indication: FEBRILE NEUTROPENIA
     Route: 058
     Dates: start: 20170711, end: 20170713
  8. BEPOTASTINE [Concomitant]
     Active Substance: BEPOTASTINE
     Indication: RASH MACULAR
     Dates: start: 20170620, end: 20170624
  9. RINOEBASTEL [Concomitant]
     Indication: RHINORRHOEA
     Route: 048
     Dates: start: 20170627
  10. OXYCODONE [Concomitant]
     Active Substance: OXYCODONE
     Indication: FLANK PAIN
     Route: 048
     Dates: start: 20170525
  11. BISACODYL. [Concomitant]
     Active Substance: BISACODYL
     Indication: CONSTIPATION
     Route: 054
     Dates: start: 20170619, end: 20170622
  12. FILGRASTIM [Concomitant]
     Active Substance: FILGRASTIM
     Indication: PROPHYLAXIS
     Route: 058
     Dates: start: 20170711, end: 20170713
  13. IBRUTINIB [Suspect]
     Active Substance: IBRUTINIB
     Indication: GASTROINTESTINAL CANCER METASTATIC
     Route: 048
     Dates: start: 20170525, end: 20170723
  14. IBRUTINIB [Suspect]
     Active Substance: IBRUTINIB
     Indication: GASTROINTESTINAL CANCER METASTATIC
     Route: 048
     Dates: start: 20170807, end: 20170814
  15. PRO AMINE [Concomitant]
     Indication: DECREASED APPETITE
     Dates: start: 20170626, end: 20170626
  16. LACTULOSE. [Concomitant]
     Active Substance: LACTULOSE
     Indication: CONSTIPATION
     Dates: start: 20170616
  17. MEGESTROL [Concomitant]
     Active Substance: MEGESTROL
     Indication: DECREASED APPETITE
     Dates: start: 20170626
  18. DOCETAXEL. [Suspect]
     Active Substance: DOCETAXEL
     Indication: GASTROINTESTINAL CANCER METASTATIC
     Dosage: UNK (Q3 WEEKS PER PROTOCOL)
     Route: 042
     Dates: start: 20170525, end: 20170727
  19. AMOSTATIN [Concomitant]
     Indication: GASTROOESOPHAGEAL REFLUX PROPHYLAXIS
     Route: 048
     Dates: start: 20170508

REACTIONS (2)
  - Atypical pneumonia [Recovered/Resolved]
  - Haematuria [Fatal]

NARRATIVE: CASE EVENT DATE: 20170722
